FAERS Safety Report 6992802-2 (Version None)
Quarter: 2010Q3

REPORT INFORMATION
  Report Type: 
  Country: None (occurrence: None)
  Receive Date: 20100917
  Receipt Date: 20100915
  Transmission Date: 20110219
  Serious: Yes (Other)
  Sender: FDA-Public Use
  Company Number: A0881308A

PATIENT
  Age: 68 Year
  Sex: Female

DRUGS (6)
  1. ADVAIR DISKUS 100/50 [Suspect]
     Indication: CHRONIC OBSTRUCTIVE PULMONARY DISEASE
     Dosage: 1PUFF TWICE PER DAY
     Route: 055
     Dates: start: 20090101
  2. GLEEVEC [Suspect]
  3. VENLAFAXINE [Concomitant]
  4. OMEPRAZOLE [Concomitant]
  5. POTASSIUM CHLORIDE [Concomitant]
  6. UNSPECIFIED MEDICATION [Concomitant]

REACTIONS (1)
  - EYE HAEMORRHAGE [None]
